FAERS Safety Report 24307134 (Version 3)
Quarter: 2024Q4

REPORT INFORMATION
  Report Type: Spontaneous
  Country: JP (occurrence: JP)
  Receive Date: 20240911
  Receipt Date: 20241230
  Transmission Date: 20250114
  Serious: No
  Sender: MERCK
  Company Number: JP-MSD-2409JPN000357J

PATIENT
  Age: 72 Year
  Sex: Male
  Weight: 58 kg

DRUGS (8)
  1. LAGEVRIO [Suspect]
     Active Substance: MOLNUPIRAVIR
     Indication: COVID-19 treatment
     Dosage: 800 MILLIGRAM, ONCE, EVENING
     Route: 048
     Dates: start: 20240127, end: 20240127
  2. LAGEVRIO [Suspect]
     Active Substance: MOLNUPIRAVIR
     Dosage: 800 MILLIGRAM, BID
     Route: 048
     Dates: start: 20240128, end: 20240129
  3. LAGEVRIO [Suspect]
     Active Substance: MOLNUPIRAVIR
     Dosage: 800 MILLIGRAM, ONCE, MORNING
     Route: 048
     Dates: start: 20240130, end: 20240130
  4. CANAGLIFLOZIN [Concomitant]
     Active Substance: CANAGLIFLOZIN
     Dosage: UNK
     Route: 048
     Dates: end: 20240130
  5. MITIGLINIDE CALCIUM HYDRATE\VOGLIBOSE [Concomitant]
     Active Substance: MITIGLINIDE CALCIUM HYDRATE\VOGLIBOSE
     Dosage: UNK
     Route: 048
     Dates: end: 20240130
  6. TADALAFIL ZA [Concomitant]
     Dosage: UNK
     Route: 048
     Dates: end: 20240130
  7. VIBEGRON [Concomitant]
     Active Substance: VIBEGRON
     Dosage: UNK
     Route: 048
     Dates: end: 20240130
  8. METFORMIN HYDROCHLORIDE [Concomitant]
     Active Substance: METFORMIN HYDROCHLORIDE
     Dosage: UNK
     Route: 048
     Dates: end: 20240130

REACTIONS (1)
  - Drug eruption [Recovered/Resolved]

NARRATIVE: CASE EVENT DATE: 20240130
